FAERS Safety Report 24923080 (Version 2)
Quarter: 2025Q1

REPORT INFORMATION
  Report Type: Spontaneous
  Country: CH (occurrence: CH)
  Receive Date: 20250204
  Receipt Date: 20250211
  Transmission Date: 20250409
  Serious: Yes (Hospitalization, Other)
  Sender: BAYER HEALTHCARE PHARMACEUTICALS INC.
  Company Number: CH-BAYER-2024A180341

PATIENT
  Age: 22 Year
  Sex: Female
  Weight: 73 kg

DRUGS (2)
  1. ULTRAVIST [Suspect]
     Active Substance: IOPROMIDE
     Indication: Magnetic resonance imaging
     Route: 013
     Dates: start: 20231230, end: 20231230
  2. ULTRAVIST [Suspect]
     Active Substance: IOPROMIDE
     Indication: Intracranial aneurysm
     Route: 013
     Dates: start: 20231231, end: 20231231

REACTIONS (5)
  - Contrast encephalopathy [None]
  - Neurotoxicity [Recovered/Resolved]
  - Aphasia [Recovered/Resolved]
  - Hemiplegia [Recovered/Resolved]
  - Nervous system disorder [None]

NARRATIVE: CASE EVENT DATE: 20231231
